FAERS Safety Report 9667072 (Version 1)
Quarter: 2013Q4

REPORT INFORMATION
  Report Type: Spontaneous
  Country: US (occurrence: US)
  Receive Date: 20131104
  Receipt Date: 20131104
  Transmission Date: 20140711
  Serious: No
  Sender: FDA-Public Use
  Company Number: US-BIOGENIDEC-2013BI089700

PATIENT
  Sex: Female

DRUGS (15)
  1. TECFIDERA [Suspect]
     Indication: MULTIPLE SCLEROSIS
     Route: 048
     Dates: start: 20130823
  2. ALBUTEROL SULFATE [Concomitant]
  3. ASPIRIN [Concomitant]
  4. BACLOFEN [Concomitant]
  5. CYMBALTA [Concomitant]
  6. GABAPENTIN [Concomitant]
  7. GLUCOTROL [Concomitant]
  8. OXYCODONE HCLM [Concomitant]
  9. OXYCONTIN [Concomitant]
  10. PLAVIX [Concomitant]
  11. REQUIP [Concomitant]
  12. SIMVASTATIN [Concomitant]
  13. LASIX [Concomitant]
  14. LEVEMIR [Concomitant]
  15. OXCARBAZEPINE [Concomitant]

REACTIONS (1)
  - Nausea [Unknown]
